FAERS Safety Report 9693097 (Version 1)
Quarter: 2013Q4

REPORT INFORMATION
  Report Type: Spontaneous
  Country: IN (occurrence: None)
  Receive Date: 20131114
  Receipt Date: 20131114
  Transmission Date: 20140711
  Serious: Yes (Death, Other)
  Sender: FDA-Public Use
  Company Number: EUS-2013-00686

PATIENT
  Age: 2 Year
  Sex: Male

DRUGS (4)
  1. ASPARAGINASE [Suspect]
     Indication: B PRECURSOR TYPE ACUTE LEUKAEMIA
  2. PREDNISOLONE (PREDNISOLONE) (PREDNISOLONE) [Concomitant]
  3. VINCRISTINE (VINCRISTINE) (VINCRISTINE) [Concomitant]
  4. DAUNORUBICIN [Concomitant]

REACTIONS (4)
  - Guillain-Barre syndrome [None]
  - Coagulopathy [None]
  - Thrombocytopenia [None]
  - Sepsis [None]
